FAERS Safety Report 21713394 (Version 1)
Quarter: 2022Q4

REPORT INFORMATION
  Report Type: Spontaneous
  Country: CH (occurrence: CH)
  Receive Date: 20221212
  Receipt Date: 20221212
  Transmission Date: 20230113
  Serious: Yes (Other)
  Sender: FDA-Public Use
  Company Number: None

PATIENT
  Age: 78 Year
  Sex: Male

DRUGS (22)
  1. LANTUS [Suspect]
     Active Substance: INSULIN GLARGINE
     Dosage: 24 IU, QD
     Dates: start: 20221113
  2. INSULIN ASPART [Suspect]
     Active Substance: INSULIN ASPART
     Dosage: UNK UNK, PRN
     Dates: start: 20221113
  3. QUETIAPINE FUMARATE [Suspect]
     Active Substance: QUETIAPINE FUMARATE
     Dosage: 12.5 MG, QD
     Dates: start: 20221113
  4. QUETIAPINE FUMARATE [Suspect]
     Active Substance: QUETIAPINE FUMARATE
     Dosage: UNK UNK, PRN
     Dates: start: 20221113
  5. RIVASTIGMINE [Suspect]
     Active Substance: RIVASTIGMINE
     Dosage: 4.6 MG, QD
     Dates: start: 20221114
  6. SODIUM PICOSULFATE [Suspect]
     Active Substance: SODIUM PICOSULFATE
     Dosage: 10 MG, QD
     Dates: start: 20221116
  7. SODIUM PICOSULFATE [Suspect]
     Active Substance: SODIUM PICOSULFATE
     Dosage: UNK UNK, PRN (5 MG MAX 2X/J ; AS NECESSARY)
     Dates: start: 20221116
  8. ACETAMINOPHEN [Suspect]
     Active Substance: ACETAMINOPHEN
     Dosage: UNK UNK, PRN (1000 MG MAX 3X/D (ADMINISTERED REGULARLY UNTIL 18.11.22); AS NECESSARY)
     Dates: start: 20221113
  9. MORPHINE HYDROCHLORIDE [Suspect]
     Active Substance: MORPHINE HYDROCHLORIDE
     Dosage: UNK, PRN (5 MG MAX 1X/4H ; AS NECESSARY)
     Dates: start: 20221113
  10. LORAZEPAM [Suspect]
     Active Substance: LORAZEPAM
     Dosage: 1 MG, 1X
     Dates: start: 20221115, end: 20221115
  11. LORAZEPAM [Suspect]
     Active Substance: LORAZEPAM
     Dosage: 1 MG, 1X
     Dates: start: 20221116, end: 20221116
  12. LORAZEPAM [Suspect]
     Active Substance: LORAZEPAM
     Dosage: 1 MG, 1X
     Dates: start: 20221118, end: 20221118
  13. LORAZEPAM [Suspect]
     Active Substance: LORAZEPAM
     Dosage: 1 MG, 1X
     Dates: start: 20221120, end: 20221120
  14. LORAZEPAM [Suspect]
     Active Substance: LORAZEPAM
     Dosage: 1 MG, 1X
     Dates: start: 20221121, end: 20221121
  15. PAXLOVID [Suspect]
     Active Substance: NIRMATRELVIR\RITONAVIR
     Dosage: 300 MG, BID
     Dates: start: 20221118, end: 20221123
  16. TENORMIN [Concomitant]
     Active Substance: ATENOLOL
  17. AMLODIPINE [Concomitant]
     Active Substance: AMLODIPINE BESYLATE
  18. PERINDOPRIL [Concomitant]
     Active Substance: PERINDOPRIL
  19. ELIQUIS [Concomitant]
     Active Substance: APIXABAN
     Dates: end: 20221118
  20. METFORMIN HYDROCHLORIDE\SITAGLIPTIN PHOSPHATE [Concomitant]
     Active Substance: METFORMIN HYDROCHLORIDE\SITAGLIPTIN PHOSPHATE
     Dosage: UNK
     Dates: end: 20221118
  21. SIMVASTATIN [Concomitant]
     Active Substance: SIMVASTATIN
     Dates: end: 20221117
  22. HALOPERIDOL [Concomitant]
     Active Substance: HALOPERIDOL
     Dates: start: 20221114, end: 20221114

REACTIONS (1)
  - Cholestatic liver injury [Not Recovered/Not Resolved]

NARRATIVE: CASE EVENT DATE: 20221118
